FAERS Safety Report 7292975-0 (Version None)
Quarter: 2011Q1

REPORT INFORMATION
  Report Type: 
  Country: None (occurrence: None)
  Receive Date: 20110209
  Receipt Date: 20110209
  Transmission Date: 20110831
  Serious: Yes (Hospitalization)
  Sender: FDA-Public Use
  Company Number: None

PATIENT
  Age: 70 Year
  Sex: Female
  Weight: 79.8331 kg

DRUGS (1)
  1. CIPROFLOXACIN [Suspect]
     Indication: SEPSIS
     Dosage: 400MG Q12 HOURS IV DRIP
     Route: 041
     Dates: start: 20110202, end: 20110202

REACTIONS (1)
  - RASH MACULO-PAPULAR [None]
